FAERS Safety Report 7795805-3 (Version None)
Quarter: 2011Q4

REPORT INFORMATION
  Report Type: 
  Country: None (occurrence: None)
  Receive Date: 20111004
  Receipt Date: 20110927
  Transmission Date: 20120403
  Serious: Yes (Other)
  Sender: FDA-Public Use
  Company Number: US-AMGEN-USASP2011049921

PATIENT
  Sex: Female

DRUGS (6)
  1. ENBREL [Suspect]
     Indication: ARTHROPATHY
     Dosage: 50 MG, QWK
     Dates: start: 20110601
  2. BUPROPION                          /00700502/ [Concomitant]
     Dosage: UNK MG, UNK
  3. FOLIC ACID [Concomitant]
     Dosage: UNK MG, UNK
  4. SUMATRIPTAN SUCCINATE [Concomitant]
     Dosage: UNK MG, UNK
  5. METHOTREXATE [Concomitant]
     Dosage: UNK MG, UNK
     Dates: start: 20101001
  6. OMNARIS [Concomitant]
     Dosage: UNK MUG, UNK

REACTIONS (1)
  - VISUAL IMPAIRMENT [None]
